FAERS Safety Report 26154243 (Version 1)
Quarter: 2025Q4

REPORT INFORMATION
  Report Type: Spontaneous
  Country: US (occurrence: US)
  Receive Date: 20251215
  Receipt Date: 20251215
  Transmission Date: 20260117
  Serious: Yes (Other)
  Sender: TOLMAR
  Company Number: US-Tolmar-TLM-2025-09350

PATIENT
  Age: 68 Year
  Sex: Male

DRUGS (4)
  1. TESTOSTERONE UNDECANOATE [Suspect]
     Active Substance: TESTOSTERONE UNDECANOATE
     Indication: Hormone replacement therapy
     Route: 065
  2. levothyroxine replacement therapy [Concomitant]
     Indication: Product used for unknown indication
  3. CoQ10 supplements [Concomitant]
     Indication: Product used for unknown indication
  4. folate supplementation [Concomitant]
     Indication: Methylenetetrahydrofolate reductase gene mutation

REACTIONS (3)
  - Blindness [Unknown]
  - Optic ischaemic neuropathy [Unknown]
  - Polycythaemia [Unknown]
